FAERS Safety Report 24463036 (Version 1)
Quarter: 2024Q4

REPORT INFORMATION
  Report Type: Spontaneous
  Country: US (occurrence: US)
  Receive Date: 20241018
  Receipt Date: 20241018
  Transmission Date: 20250115
  Serious: Yes (Hospitalization, Other)
  Sender: AMGEN
  Company Number: US-AMGEN-USASP2024201532

PATIENT
  Age: 41 Year
  Sex: Female

DRUGS (7)
  1. AIMOVIG [Suspect]
     Active Substance: ERENUMAB-AOOE
     Indication: Migraine
     Dosage: 140 MILLIGRAM, QMO
     Route: 058
  2. AIMOVIG [Suspect]
     Active Substance: ERENUMAB-AOOE
     Dosage: 140 MILLIGRAM
     Route: 058
  3. COLCHICINE [Suspect]
     Active Substance: COLCHICINE
     Indication: Pneumothorax
     Dosage: UNK (WHATEVER THE LOWEST DOSE WAS, TAKE TWO OF THEM)
     Route: 065
     Dates: start: 202403
  4. ASPIRIN [Concomitant]
     Active Substance: ASPIRIN
     Indication: Artificial heart implant
     Dosage: 81 MILLIGRAM, BID
  5. ASPIRIN [Concomitant]
     Active Substance: ASPIRIN
     Indication: Transient ischaemic attack
     Dosage: 81 MILLIGRAM, BID
     Dates: start: 202401
  6. LOSARTAN [Concomitant]
     Active Substance: LOSARTAN
     Indication: Cardiac disorder
     Dosage: 100 MILLIGRAM. 2015 OR 2016
  7. LOSARTAN [Concomitant]
     Active Substance: LOSARTAN
     Indication: Hypertension

REACTIONS (9)
  - Nephrolithiasis [Recovered/Resolved]
  - Procedural pneumothorax [Unknown]
  - Pneumonitis [Unknown]
  - Sepsis [Not Recovered/Not Resolved]
  - Device difficult to use [Unknown]
  - Drug dose omission by device [Unknown]
  - Cardiac disorder [Unknown]
  - Somnolence [Unknown]
  - Accidental exposure to product [Unknown]

NARRATIVE: CASE EVENT DATE: 20240801
